FAERS Safety Report 9003368 (Version 1)
Quarter: 2013Q1

REPORT INFORMATION
  Report Type: Spontaneous
  Country: US (occurrence: US)
  Receive Date: 20130108
  Receipt Date: 20130108
  Transmission Date: 20140127
  Serious: No
  Sender: FDA-Public Use
  Company Number: US-ASTRAZENECA-2012SE91574

PATIENT
  Age: 82 Year
  Sex: Male
  Weight: 93 kg

DRUGS (4)
  1. SYMBICORT PMDI [Suspect]
     Indication: ASTHMA
     Dosage: 80/4.5, TWO PUFFS TWICE DAILY
     Route: 055
  2. SYMBICORT PMDI [Suspect]
     Indication: ASTHMA
     Dosage: 80/4.5, TWO PUFFS ONCE DAILY
     Route: 055
  3. BLOOD PRESSURE MEDICATION [Concomitant]
  4. DIABETES MEDICATION [Concomitant]

REACTIONS (3)
  - Asthma [Not Recovered/Not Resolved]
  - Dysphonia [Not Recovered/Not Resolved]
  - Intentional drug misuse [Unknown]
